FAERS Safety Report 20257497 (Version 5)
Quarter: 2022Q2

REPORT INFORMATION
  Report Type: Report from Study
  Country: IT (occurrence: None)
  Receive Date: 20211230
  Receipt Date: 20220610
  Transmission Date: 20220720
  Serious: Yes (Hospitalization, Other)
  Sender: FDA-Public Use
  Company Number: IT-ROCHE-2956324

PATIENT
  Age: 45 Year
  Sex: Female
  Weight: 58 kg

DRUGS (34)
  1. OBINUTUZUMAB [Suspect]
     Active Substance: OBINUTUZUMAB
     Indication: Non-Hodgkin^s lymphoma
     Dosage: MOST RECENT DOSE OF STUDY DRUG PRIOR TO AE: 22/OCT/2021, AT 12:05 PM
     Route: 042
     Dates: start: 20211022
  2. GLOFITAMAB [Suspect]
     Active Substance: GLOFITAMAB
     Indication: Non-Hodgkin^s lymphoma
     Dosage: DOSE LAST STUDY DRUG ADMIN PRIOR AE IS 2.5 MGDOSE LAST STUDY DRUG ADMIN PRIOR SAE IS 2.5 MG
     Route: 058
     Dates: start: 20211104
  3. TOCILIZUMAB [Suspect]
     Active Substance: TOCILIZUMAB
     Indication: Non-Hodgkin^s lymphoma
     Dosage: LAST  DOSE OF TOCILIZUMAB ADMIN PRIOR AE/ SAE: 480 MG?START DATE OF MOST RECENT DOSE OF STUDY DRUG
     Route: 042
     Dates: start: 20211105
  4. BACTRIM [Concomitant]
     Active Substance: SULFAMETHOXAZOLE\TRIMETHOPRIM
     Indication: Prophylaxis
     Route: 048
     Dates: start: 202101
  5. ACYCLOVIR [Concomitant]
     Active Substance: ACYCLOVIR
     Indication: Prophylaxis
     Route: 048
     Dates: start: 202101
  6. TRAMADOL [Concomitant]
     Active Substance: TRAMADOL
     Route: 048
     Dates: end: 20211028
  7. NADROPARIN CALCIUM [Concomitant]
     Active Substance: NADROPARIN CALCIUM
     Dosage: 1 OTHER
     Route: 058
     Dates: start: 202108
  8. NALOXONE HYDROCHLORIDE\OXYCODONE HYDROCHLORIDE [Concomitant]
     Active Substance: NALOXONE HYDROCHLORIDE\OXYCODONE HYDROCHLORIDE
     Route: 048
     Dates: start: 20211001, end: 20211028
  9. FILGRASTIM [Concomitant]
     Active Substance: FILGRASTIM
     Indication: Neutropenia
     Dosage: 1 OTHER
     Route: 058
     Dates: start: 20211024, end: 20211028
  10. OXYGEN [Concomitant]
     Active Substance: OXYGEN
     Indication: Hypoxia
  11. VASOPRESSIN [Concomitant]
     Active Substance: VASOPRESSIN
     Indication: Hypotension
  12. DEXAMETHASONE [Concomitant]
     Active Substance: DEXAMETHASONE
     Indication: Unevaluable event
     Route: 042
     Dates: start: 20211022, end: 20211022
  13. DEXAMETHASONE [Concomitant]
     Active Substance: DEXAMETHASONE
     Route: 042
     Dates: start: 20211104, end: 20211104
  14. DEXAMETHASONE [Concomitant]
     Active Substance: DEXAMETHASONE
     Route: 042
     Dates: start: 20211105, end: 20211109
  15. CHLORPHENIRAMINE MALEATE [Concomitant]
     Active Substance: CHLORPHENIRAMINE MALEATE
     Route: 042
     Dates: start: 20211022, end: 20211022
  16. CHLORPHENIRAMINE MALEATE [Concomitant]
     Active Substance: CHLORPHENIRAMINE MALEATE
     Route: 042
     Dates: start: 20211104, end: 20211104
  17. ACETAMINOPHEN [Concomitant]
     Active Substance: ACETAMINOPHEN
     Indication: Abdominal pain
     Route: 048
     Dates: start: 20211022, end: 20211022
  18. ACETAMINOPHEN [Concomitant]
     Active Substance: ACETAMINOPHEN
     Route: 048
     Dates: start: 20211104, end: 20211104
  19. ACETAMINOPHEN [Concomitant]
     Active Substance: ACETAMINOPHEN
     Route: 042
     Dates: start: 20211027, end: 20211029
  20. IBUPROFEN [Concomitant]
     Active Substance: IBUPROFEN
     Route: 042
     Dates: start: 20211105, end: 20211105
  21. HYDROCORTISONE [Concomitant]
     Active Substance: HYDROCORTISONE
     Indication: Unevaluable event
     Route: 042
     Dates: start: 20211105, end: 20211105
  22. RINGER ACETATO [Concomitant]
     Route: 042
     Dates: start: 20211105, end: 20211109
  23. MORPHINE [Concomitant]
     Active Substance: MORPHINE
     Route: 042
     Dates: start: 20211020
  24. RASBURICASE [Concomitant]
     Active Substance: RASBURICASE
     Route: 042
     Dates: start: 20211027, end: 20211107
  25. FENTANYL [Concomitant]
     Active Substance: FENTANYL
     Indication: Chest pain
     Route: 062
     Dates: start: 20211029, end: 20211105
  26. METHYLPREDNISOLONE [Concomitant]
     Active Substance: METHYLPREDNISOLONE
     Indication: Pneumonitis
     Route: 042
     Dates: start: 20211022, end: 20211022
  27. MAGNESIUM HYDROXIDE [Concomitant]
     Active Substance: MAGNESIUM HYDROXIDE
     Indication: Prophylaxis
     Route: 048
     Dates: start: 20211102, end: 20211106
  28. OMEPRAZOLE [Concomitant]
     Active Substance: OMEPRAZOLE
     Indication: Gastritis prophylaxis
     Route: 048
     Dates: start: 20211103, end: 20211118
  29. CALCIUM GLUCONATE [Concomitant]
     Active Substance: CALCIUM GLUCONATE
     Indication: Hypocalcaemia
     Route: 042
     Dates: start: 20211106, end: 20211108
  30. MAGNESIUM SULFATE [Concomitant]
     Active Substance: MAGNESIUM SULFATE
     Indication: Prophylaxis
     Route: 042
     Dates: start: 20211109, end: 20211117
  31. FUROSEMIDE [Concomitant]
     Active Substance: FUROSEMIDE
     Route: 042
     Dates: start: 20211106, end: 20211118
  32. FUROSEMIDE [Concomitant]
     Active Substance: FUROSEMIDE
     Route: 042
     Dates: start: 20211109, end: 20211109
  33. RIOPAN (ITALY) [Concomitant]
     Indication: Gastritis prophylaxis
     Route: 048
     Dates: start: 20211028
  34. KAYEXALATE [Concomitant]
     Active Substance: SODIUM POLYSTYRENE SULFONATE
     Route: 048
     Dates: start: 20211022, end: 20211022

REACTIONS (2)
  - Pneumonitis [Not Recovered/Not Resolved]
  - Cytokine release syndrome [Recovered/Resolved]

NARRATIVE: CASE EVENT DATE: 20211105
